FAERS Safety Report 8549010-3 (Version None)
Quarter: 2012Q3

REPORT INFORMATION
  Report Type: 
  Country: None (occurrence: None)
  Receive Date: 20120730
  Receipt Date: 20120718
  Transmission Date: 20120928
  Serious: Yes (Hospitalization)
  Sender: FDA-Public Use
  Company Number: KR-MPIJNJ-2011-06696

PATIENT

DRUGS (8)
  1. VELCADE [Suspect]
     Indication: MULTIPLE MYELOMA
     Dosage: 1.3 MG/M2, CYCLIC
     Route: 042
     Dates: start: 20110908, end: 20111020
  2. MELPHALAN HYDROCHLORIDE [Suspect]
     Dosage: 6.5 UNK, UNK
     Route: 065
     Dates: start: 20111220, end: 20120626
  3. PREDNISOLONE [Suspect]
     Dosage: 45 MG/M2, UNK
     Route: 065
     Dates: start: 20111220, end: 20120626
  4. PREDNISOLONE [Suspect]
     Dosage: 60 MG/M2, UNK
     Route: 042
     Dates: start: 20111031, end: 20111103
  5. PREDNISOLONE [Suspect]
     Indication: MULTIPLE MYELOMA
     Dosage: 60 MG/M2, UNK
     Route: 042
     Dates: start: 20110918, end: 20110921
  6. MELPHALAN HYDROCHLORIDE [Suspect]
     Indication: MULTIPLE MYELOMA
     Dosage: 9 MG/M2, UNK
     Route: 042
     Dates: start: 20110918, end: 20110921
  7. VELCADE [Suspect]
     Dosage: 1.0 MG/M2, UNK
     Route: 042
     Dates: start: 20111031, end: 20120621
  8. MELPHALAN HYDROCHLORIDE [Suspect]
     Dosage: 9 MG/M2, UNK
     Route: 042
     Dates: start: 20111031, end: 20111103

REACTIONS (1)
  - PNEUMOCYSTIS JIROVECI PNEUMONIA [None]
